FAERS Safety Report 8590024-5 (Version None)
Quarter: 2012Q3

REPORT INFORMATION
  Report Type: 
  Country: None (occurrence: None)
  Receive Date: 20120813
  Receipt Date: 20120806
  Transmission Date: 20120928
  Serious: Yes (Life-Threatening, Hospitalization)
  Sender: FDA-Public Use
  Company Number: GB-CELGENEUS-167-50794-12061551

PATIENT
  Sex: Male
  Weight: 162 kg

DRUGS (7)
  1. VIDAZA [Suspect]
     Indication: ACUTE MYELOID LEUKAEMIA
     Dosage: 95 MILLIGRAM
     Route: 058
     Dates: start: 20120319, end: 20120522
  2. ALBUTEROL SULATE [Concomitant]
     Indication: ASTHMA
     Route: 055
  3. GRANISETRON [Concomitant]
     Indication: ANTIEMETIC SUPPORTIVE CARE
     Dosage: 2 MILLIGRAM
     Route: 065
     Dates: start: 20120319, end: 20120522
  4. OMEPRAZOLE [Concomitant]
     Indication: PROPHYLAXIS
     Dosage: 20 MILLIGRAM
     Route: 065
     Dates: end: 20120514
  5. METFORMIN HYDROCHLORIDE [Concomitant]
     Dosage: 2 GRAM
     Route: 048
     Dates: end: 20120514
  6. NITROGLYCERIN [Concomitant]
     Dosage: 2 PUFFS
     Route: 065
  7. RAMIPRIL [Concomitant]
     Indication: HYPERTENSION
     Dosage: 5 MILLIGRAM
     Route: 065
     Dates: end: 20120514

REACTIONS (1)
  - RENAL FAILURE ACUTE [None]
